FAERS Safety Report 13980506 (Version 1)
Quarter: 2017Q3

REPORT INFORMATION
  Report Type: Spontaneous
  Country: US (occurrence: US)
  Receive Date: 20170918
  Receipt Date: 20170918
  Transmission Date: 20171128
  Serious: Yes (Other)
  Sender: FDA-Public Use
  Company Number: US-TEVA-806079ACC

PATIENT
  Sex: Male

DRUGS (1)
  1. TAMSULOSIN [Suspect]
     Active Substance: TAMSULOSIN
     Route: 065

REACTIONS (4)
  - Mental disorder [Unknown]
  - Muscle twitching [Unknown]
  - Amnesia [Unknown]
  - Hormone level abnormal [Unknown]
